FAERS Safety Report 5984618-0 (Version None)
Quarter: 2008Q4

REPORT INFORMATION
  Report Type: 
  Country: None (occurrence: None)
  Receive Date: 20081202
  Receipt Date: 20081117
  Transmission Date: 20090506
  Serious: Yes (Hospitalization)
  Sender: FDA-Public Use
  Company Number: 2008-179840-NL

PATIENT
  Age: 42 Year
  Sex: Male

DRUGS (8)
  1. MIRTAZAPINE [Suspect]
     Dosage: 15 MG ORAL
     Route: 048
     Dates: start: 20070501, end: 20080422
  2. MIRTAZAPINE [Suspect]
     Dosage: 15 MG ORAL
     Route: 048
     Dates: start: 20080505
  3. DIVALPROEX SODIUM [Suspect]
     Dosage: 500 MG ORAL
     Route: 048
     Dates: end: 20080422
  4. TERBUTALINE SULFATE [Concomitant]
  5. TRAVOPROST [Concomitant]
  6. DORZOLAMIDE W/TIMOLOL [Concomitant]
  7. ALBUTEROL SULFATE [Concomitant]
  8. PRAZEPAM [Concomitant]

REACTIONS (2)
  - CYTOLYTIC HEPATITIS [None]
  - HEPATITIS FULMINANT [None]
